FAERS Safety Report 7330043-X (Version None)
Quarter: 2011Q1

REPORT INFORMATION
  Report Type: 
  Country: None (occurrence: None)
  Receive Date: 20110303
  Receipt Date: 20101216
  Transmission Date: 20110831
  Serious: Yes (Hospitalization, Other)
  Sender: FDA-Public Use
  Company Number: US-BAYER-201026515NA

PATIENT
  Sex: Female
  Weight: 145.13 kg

DRUGS (11)
  1. IBUPROFEN [Concomitant]
  2. OMEPRAZOLE [Concomitant]
     Indication: GASTROOESOPHAGEAL REFLUX DISEASE
     Dosage: 20 MG, UNK
  3. MEDROXYPROGESTERONE [Concomitant]
     Indication: MENORRHAGIA
     Dosage: 10 MG, UNK
  4. SERTRALINE HYDROCHLORIDE [Concomitant]
     Indication: DEPRESSION
     Dosage: 50 MG, UNK
  5. FORADIL [Concomitant]
  6. YAZ [Suspect]
     Indication: MENSTRUATION IRREGULAR
     Dosage: UNK
     Route: 048
     Dates: start: 20070901, end: 20080601
  7. PSEUDOEPHEDRINE HCL [Concomitant]
  8. QVAR 40 [Concomitant]
  9. ALBUTEROL [Concomitant]
     Indication: ASTHMA
  10. AZMACORT [Concomitant]
  11. LEXAPRO [Concomitant]
     Indication: DEPRESSION

REACTIONS (16)
  - CHEST DISCOMFORT [None]
  - PALPITATIONS [None]
  - INFERTILITY [None]
  - TACHYCARDIA [None]
  - GASTROOESOPHAGEAL REFLUX DISEASE [None]
  - THROMBOPHLEBITIS [None]
  - PULMONARY EMBOLISM [None]
  - ATRIAL FIBRILLATION [None]
  - DEPRESSION [None]
  - NAUSEA [None]
  - DYSPNOEA [None]
  - COLD SWEAT [None]
  - DEEP VEIN THROMBOSIS [None]
  - OEDEMA PERIPHERAL [None]
  - HYPERHIDROSIS [None]
  - MENORRHAGIA [None]
